FAERS Safety Report 6151191-6 (Version None)
Quarter: 2009Q2

REPORT INFORMATION
  Report Type: 
  Country: None (occurrence: None)
  Receive Date: 20090410
  Receipt Date: 20090330
  Transmission Date: 20091009
  Serious: Yes (Life-Threatening, Other)
  Sender: FDA-Public Use
  Company Number: DK-JNJFOC-20090307477

PATIENT
  Sex: Female

DRUGS (7)
  1. REMICADE [Suspect]
     Route: 042
  2. REMICADE [Suspect]
     Route: 042
  3. REMICADE [Suspect]
     Indication: RHEUMATOID ARTHRITIS
     Dosage: WEEK 0, 2, 6+8
     Route: 042
  4. PREDNISOLONE [Concomitant]
  5. PREDNISOLONE [Concomitant]
  6. METHOTREXATE [Concomitant]
     Route: 048
  7. METHOTREXATE [Concomitant]
     Route: 048

REACTIONS (2)
  - BREAST CANCER [None]
  - RASH PRURITIC [None]
